FAERS Safety Report 8173450-8 (Version None)
Quarter: 2012Q1

REPORT INFORMATION
  Report Type: 
  Country: None (occurrence: None)
  Receive Date: 20120229
  Receipt Date: 20120221
  Transmission Date: 20120608
  Serious: Yes (Other)
  Sender: FDA-Public Use
  Company Number: US-BAYER-2012-017769

PATIENT

DRUGS (1)
  1. AVELOX [Suspect]
     Indication: INFECTION
     Dosage: DAILY DOSE 400 MG
     Route: 042

REACTIONS (2)
  - RESPIRATORY DISTRESS [None]
  - DYSPNOEA [None]
